FAERS Safety Report 6412215-1 (Version None)
Quarter: 2009Q4

REPORT INFORMATION
  Report Type: 
  Country: None (occurrence: None)
  Receive Date: 20091023
  Receipt Date: 20091016
  Transmission Date: 20100525
  Serious: Yes (Other)
  Sender: FDA-Public Use
  Company Number: B0596208A

PATIENT
  Age: 69 Year

DRUGS (2)
  1. REQUIP [Suspect]
     Indication: PARKINSON'S DISEASE
     Dosage: 2MG THREE TIMES PER DAY
     Route: 048
  2. ARTANE [Concomitant]
     Indication: PARKINSON'S DISEASE
     Dosage: 4MG PER DAY
     Route: 048

REACTIONS (1)
  - SUDDEN ONSET OF SLEEP [None]
